FAERS Safety Report 8810015 (Version 1)
Quarter: 2012Q4

REPORT INFORMATION
  Report Type: 
  Country: GB (occurrence: GB)
  Receive Date: 20120926
  Receipt Date: 20120926
  Transmission Date: 20130627
  Serious: Yes (Other)
  Sender: FDA-Public Use
  Company Number: GB-JHP PHARMACEUTICALS, LLC-JHP201200478

PATIENT
  Age: 27 Year
  Sex: Male

DRUGS (3)
  1. KETALAR [Suspect]
     Indication: DRUG ABUSE
     Dosage: } 1 g/day over 12 months
  2. RITONAVIR [Interacting]
     Indication: ANTIRETROVIRAL THERAPY
  3. UNSPECIFIED INGREDIENT [Interacting]

REACTIONS (3)
  - Hepatobiliary disease [Recovered/Resolved]
  - Drug interaction [Recovered/Resolved]
  - Hepatotoxicity [None]
